FAERS Safety Report 16979160 (Version 7)
Quarter: 2025Q4

REPORT INFORMATION
  Report Type: Spontaneous
  Country: US (occurrence: US)
  Receive Date: 20191031
  Receipt Date: 20251230
  Transmission Date: 20260118
  Serious: Yes (Other)
  Sender: GILEAD
  Company Number: US-GILEAD-2019-0434756

PATIENT
  Age: 40 Year
  Sex: Male
  Weight: 79.365 kg

DRUGS (28)
  1. TRUVADA [Suspect]
     Active Substance: EMTRICITABINE\TENOFOVIR DISOPROXIL FUMARATE
     Indication: HIV infection
     Dosage: UNK
     Route: 048
     Dates: start: 2015, end: 2016
  2. TRUVADA [Suspect]
     Active Substance: EMTRICITABINE\TENOFOVIR DISOPROXIL FUMARATE
     Dosage: UNK
     Route: 048
     Dates: start: 20131231, end: 20160601
  3. TRUVADA [Suspect]
     Active Substance: EMTRICITABINE\TENOFOVIR DISOPROXIL FUMARATE
     Dosage: UNK
     Route: 048
     Dates: start: 2011, end: 2019
  4. VIREAD [Suspect]
     Active Substance: TENOFOVIR DISOPROXIL FUMARATE
     Indication: HIV infection
     Route: 048
  5. ATRIPLA [Suspect]
     Active Substance: EFAVIRENZ\EMTRICITABINE\TENOFOVIR DISOPROXIL FUMARATE
     Indication: HIV infection
     Route: 048
  6. COMPLERA [Suspect]
     Active Substance: EMTRICITABINE\RILPIVIRINE HYDROCHLORIDE\TENOFOVIR DISOPROXIL FUMARATE
     Indication: HIV infection
     Route: 048
  7. STRIBILD [Suspect]
     Active Substance: COBICISTAT\ELVITEGRAVIR\EMTRICITABINE\TENOFOVIR DISOPROXIL FUMARATE
     Indication: HIV infection
     Route: 048
  8. DESCOVY [Concomitant]
     Active Substance: EMTRICITABINE\TENOFOVIR ALAFENAMIDE FUMARATE
  9. SYMTUZA [Concomitant]
     Active Substance: COBICISTAT\DARUNAVIR\EMTRICITABINE\TENOFOVIR ALAFENAMIDE
  10. PENICILLIN [Concomitant]
     Active Substance: PENICILLIN
  11. VIAGRA [Concomitant]
     Active Substance: SILDENAFIL CITRATE
  12. AMOXICILLIN [Concomitant]
     Active Substance: AMOXICILLIN
  13. PREDNISONE [Concomitant]
     Active Substance: PREDNISONE
  14. NORVIR [Concomitant]
     Active Substance: RITONAVIR
  15. PREZCOBIX [Concomitant]
     Active Substance: COBICISTAT\DARUNAVIR ETHANOLATE
  16. PREZISTA [Concomitant]
     Active Substance: DARUNAVIR ETHANOLATE
  17. DOXYCYCLINE [Concomitant]
     Active Substance: DOXYCYCLINE
  18. KEFLEX [Concomitant]
     Active Substance: CEPHALEXIN
  19. PROMETHAZINE DM [Concomitant]
     Active Substance: DEXTROMETHORPHAN HYDROBROMIDE\PROMETHAZINE HYDROCHLORIDE
  20. BACTRIM [Concomitant]
     Active Substance: SULFAMETHOXAZOLE\TRIMETHOPRIM
  21. VENTOLIN HFA [Concomitant]
     Active Substance: ALBUTEROL SULFATE
  22. ACETAMINOPHEN [Concomitant]
     Active Substance: ACETAMINOPHEN
  23. ANTACIDS WITH SIMETICONE [Concomitant]
  24. ASPIRIN [Concomitant]
     Active Substance: ASPIRIN
  25. FAMOTIDINE [Concomitant]
     Active Substance: FAMOTIDINE
  26. LANSOPRAZOLE [Concomitant]
     Active Substance: LANSOPRAZOLE
  27. RANITIDINE [Concomitant]
     Active Substance: RANITIDINE
  28. IBUPROFEN [Concomitant]
     Active Substance: IBUPROFEN

REACTIONS (16)
  - Craniofacial fracture [Not Recovered/Not Resolved]
  - Craniofacial fracture [Not Recovered/Not Resolved]
  - Multiple fractures [Recovered/Resolved]
  - Chronic kidney disease [Not Recovered/Not Resolved]
  - Renal injury [Unknown]
  - Renal failure [Not Recovered/Not Resolved]
  - Tooth fracture [Not Recovered/Not Resolved]
  - Bone density decreased [Unknown]
  - Tooth loss [Unknown]
  - Anxiety [Not Recovered/Not Resolved]
  - Emotional distress [Not Recovered/Not Resolved]
  - Pain [Not Recovered/Not Resolved]
  - Anhedonia [Not Recovered/Not Resolved]
  - Socioeconomic precarity [Not Recovered/Not Resolved]
  - Skeletal injury [Unknown]
  - Tooth injury [Unknown]

NARRATIVE: CASE EVENT DATE: 20150101
